FAERS Safety Report 19933053 (Version 4)
Quarter: 2022Q4

REPORT INFORMATION
  Report Type: Report from Study
  Country: US (occurrence: US)
  Receive Date: 20211008
  Receipt Date: 20221026
  Transmission Date: 20230112
  Serious: Yes (Hospitalization, Other)
  Sender: FDA-Public Use
  Company Number: US-MYLANLABS-2021M1065275

PATIENT
  Age: 63 Year
  Sex: Female
  Weight: 48 kg

DRUGS (5)
  1. GLATIRAMER ACETATE [Suspect]
     Active Substance: GLATIRAMER ACETATE
     Indication: Secondary progressive multiple sclerosis
     Dosage: 40 MILLIGRAM, 3XW (3 TIMES WEEKLY)
     Route: 058
     Dates: start: 202109
  2. GLATIRAMER ACETATE [Suspect]
     Active Substance: GLATIRAMER ACETATE
     Indication: Multiple sclerosis
  3. DEVICE [Suspect]
     Active Substance: DEVICE
     Indication: Secondary progressive multiple sclerosis
     Dosage: UNK
     Route: 065
  4. DEVICE [Suspect]
     Active Substance: DEVICE
     Indication: Multiple sclerosis
  5. PLAVIX [Concomitant]
     Active Substance: CLOPIDOGREL BISULFATE
     Dosage: UNK
     Route: 065

REACTIONS (21)
  - Hospitalisation [Recovered/Resolved]
  - Multiple sclerosis relapse [Unknown]
  - JC virus infection [Unknown]
  - Suicidal ideation [Unknown]
  - Mental disability [Unknown]
  - Depression [Unknown]
  - Physical assault [Unknown]
  - Trismus [Unknown]
  - Pharyngitis [Unknown]
  - Back pain [Unknown]
  - Injection site pain [Unknown]
  - Injection site haemorrhage [Unknown]
  - Injection site erythema [Unknown]
  - Fatigue [Unknown]
  - Drug hypersensitivity [Unknown]
  - Pharyngeal swelling [Unknown]
  - Injury associated with device [Unknown]
  - Device issue [Unknown]
  - Needle issue [Unknown]
  - Device difficult to use [Unknown]
  - Incorrect dose administered [Unknown]

NARRATIVE: CASE EVENT DATE: 20220901
